FAERS Safety Report 5663068-0 (Version None)
Quarter: 2008Q1

REPORT INFORMATION
  Report Type: 
  Country: None (occurrence: None)
  Receive Date: 20080313
  Receipt Date: 20080304
  Transmission Date: 20080703
  Serious: Yes (Other)
  Sender: FDA-Public Use
  Company Number: US-JNJFOC-20080301570

PATIENT
  Sex: Female
  Weight: 61.24 kg

DRUGS (4)
  1. TOPAMAX [Suspect]
     Indication: MIGRAINE
     Route: 048
  2. SEASONIQUE [Concomitant]
     Indication: CONTRACEPTION
  3. SYNTHROID [Concomitant]
     Indication: HYPOTHYROIDISM
  4. VICODIN [Concomitant]
     Indication: PAIN

REACTIONS (2)
  - CHOLECYSTECTOMY [None]
  - METRORRHAGIA [None]
